FAERS Safety Report 4311476-2 (Version None)
Quarter: 2004Q1

REPORT INFORMATION
  Report Type: 
  Country: None (occurrence: None)
  Receive Date: 20040303
  Receipt Date: 20040303
  Transmission Date: 20041129
  Serious: Yes (Hospitalization)
  Sender: FDA-Public Use
  Company Number: None

PATIENT
  Age: 50 Year
  Sex: Male
  Weight: 89 kg

DRUGS (8)
  1. WARFARIN SODIUM [Suspect]
     Indication: ATRIAL FIBRILLATION
     Dosage: 5 MG DAILY ORAL
     Route: 048
  2. NAPROXEN [Suspect]
     Indication: COSTOCHONDRITIS
     Dosage: 375 MG DAILY ORAL
     Route: 048
     Dates: start: 20031015, end: 20031025
  3. ASPIRIN [Concomitant]
  4. RABEPRAZOLE SODIUM [Concomitant]
  5. LISINOPRIL [Concomitant]
  6. SIMVASTATIN [Concomitant]
  7. CARVEDILOL [Concomitant]
  8. FUROSEMIDE [Concomitant]

REACTIONS (5)
  - ABDOMINAL PAIN LOWER [None]
  - BLOOD URINE [None]
  - COSTOCHONDRITIS [None]
  - FLANK PAIN [None]
  - URINARY TRACT INFECTION [None]
